FAERS Safety Report 6664035-0 (Version None)
Quarter: 2010Q2

REPORT INFORMATION
  Report Type: 
  Country: None (occurrence: None)
  Receive Date: 20100401
  Receipt Date: 20100329
  Transmission Date: 20101027
  Serious: Yes (Death)
  Sender: FDA-Public Use
  Company Number: A0842111A

PATIENT
  Age: 82 Year
  Sex: Female

DRUGS (5)
  1. PROMACTA [Suspect]
     Dosage: 25MG PER DAY
     Route: 048
     Dates: start: 20090923, end: 20091001
  2. CORTICOSTEROIDS [Concomitant]
     Dates: start: 20090610
  3. CYCLOPHOSPHAMIDE [Concomitant]
  4. DANAZOL [Concomitant]
  5. RITUXIMAB [Concomitant]

REACTIONS (11)
  - ABDOMINAL PAIN [None]
  - ANAEMIA [None]
  - CHRONIC LYMPHOCYTIC LEUKAEMIA [None]
  - DISEASE PROGRESSION [None]
  - FATIGUE [None]
  - HAEMORRHAGE [None]
  - HEPATOSPLENOMEGALY [None]
  - INCREASED TENDENCY TO BRUISE [None]
  - NON-HODGKIN'S LYMPHOMA RECURRENT [None]
  - PLATELET COUNT DECREASED [None]
  - WEIGHT DECREASED [None]
